FAERS Safety Report 7632787-9 (Version None)
Quarter: 2011Q3

REPORT INFORMATION
  Report Type: 
  Country: None (occurrence: None)
  Receive Date: 20110725
  Receipt Date: 20110721
  Transmission Date: 20111222
  Serious: Yes (Other)
  Sender: FDA-Public Use
  Company Number: FR-SANOFI-AVENTIS-2011SA046507

PATIENT
  Age: 66 Year
  Sex: Female

DRUGS (1)
  1. KERLONE [Suspect]
     Dates: start: 20090101

REACTIONS (2)
  - CUTANEOUS LUPUS ERYTHEMATOSUS [None]
  - CONDITION AGGRAVATED [None]
